FAERS Safety Report 5215410-2 (Version None)
Quarter: 2007Q1

REPORT INFORMATION
  Report Type: 
  Country: None (occurrence: None)
  Receive Date: 20070117
  Receipt Date: 20070105
  Transmission Date: 20070707
  Serious: Yes (Other)
  Sender: FDA-Public Use
  Company Number: HQWYE728108JAN07

PATIENT
  Age: 66 Year
  Sex: Male
  Weight: 85.81 kg

DRUGS (1)
  1. EFFEXOR XR [Suspect]
     Indication: DEPRESSION
     Dosage: 150 MG 1X PER 1 DAY, ORAL
     Route: 048
     Dates: start: 20030101

REACTIONS (11)
  - BAND NEUTROPHIL COUNT INCREASED [None]
  - DRUG WITHDRAWAL SYNDROME [None]
  - HAEMATURIA [None]
  - HEPATIC FAILURE [None]
  - HEPATOMEGALY [None]
  - LYMPHOCYTE COUNT DECREASED [None]
  - MONOCYTE COUNT DECREASED [None]
  - NEUTROPHIL COUNT INCREASED [None]
  - NEUTROPHIL PERCENTAGE INCREASED [None]
  - PARAESTHESIA [None]
  - SPLENOMEGALY [None]
